FAERS Safety Report 12194665 (Version 2)
Quarter: 2016Q1

REPORT INFORMATION
  Report Type: Report from Study
  Country: GB (occurrence: GB)
  Receive Date: 20160321
  Receipt Date: 20160328
  Transmission Date: 20160526
  Serious: Yes (Death, Other)
  Sender: FDA-Public Use
  Company Number: GB-GLAXOSMITHKLINE-GB2016GSK036920

PATIENT
  Age: 3 Month
  Sex: Female
  Weight: 5 kg

DRUGS (7)
  1. ZANAMIVIR [Suspect]
     Active Substance: ZANAMIVIR
     Indication: INFLUENZA
     Dosage: 60 MG, BID
     Route: 042
     Dates: start: 20160220, end: 20160223
  2. SPIRONOLACTONE. [Concomitant]
     Active Substance: SPIRONOLACTONE
     Dosage: 5 MG, BID
     Dates: end: 20160223
  3. SILDENAFIL. [Concomitant]
     Active Substance: SILDENAFIL
     Dosage: 1.75 MG, QID
     Dates: end: 20160223
  4. RANITIDINE [Concomitant]
     Active Substance: RANITIDINE\RANITIDINE HYDROCHLORIDE
     Dosage: 4.5 MG, TID
     Dates: end: 20160223
  5. TAZOCIN [Concomitant]
     Active Substance: PIPERACILLIN SODIUM\TAZOBACTAM SODIUM
     Dosage: 450 MG, QID
     Dates: start: 20160222, end: 20160223
  6. OSELTAMIVIR [Concomitant]
     Active Substance: OSELTAMIVIR
     Indication: INFLUENZA
     Dosage: 15 MG, BID
     Route: 048
     Dates: start: 20160213, end: 20160223
  7. FRUSEMIDE [Concomitant]
     Active Substance: FUROSEMIDE
     Dosage: 5 MG, TID
     Dates: end: 20160223

REACTIONS (3)
  - Lung disorder [Fatal]
  - Acute respiratory distress syndrome [Fatal]
  - Pneumothorax [Fatal]

NARRATIVE: CASE EVENT DATE: 20160226
